FAERS Safety Report 23059182 (Version 3)
Quarter: 2023Q4

REPORT INFORMATION
  Report Type: Spontaneous
  Country: CA (occurrence: CA)
  Receive Date: 20231012
  Receipt Date: 20231120
  Transmission Date: 20240110
  Serious: No
  Sender: FDA-Public Use
  Company Number: CA-PFIZER INC-202300278852

PATIENT
  Age: 35 Year
  Sex: Female

DRUGS (1)
  1. ABRILADA [Suspect]
     Active Substance: ADALIMUMAB-AFZB
     Indication: Hidradenitis
     Dosage: 1 DF(W0 160MG, W2 80MG AND 40MG EVERY WEEK, PREFILLED PEN)
     Route: 058
     Dates: start: 20230210

REACTIONS (3)
  - Condition aggravated [Unknown]
  - Liquid product physical issue [Unknown]
  - Drug dose omission by device [Unknown]

NARRATIVE: CASE EVENT DATE: 20230817
